FAERS Safety Report 18668294 (Version 4)
Quarter: 2021Q2

REPORT INFORMATION
  Report Type: Spontaneous
  Country: JP (occurrence: JP)
  Receive Date: 20201228
  Receipt Date: 20210625
  Transmission Date: 20210717
  Serious: Yes (Life-Threatening, Hospitalization, Other)
  Sender: FDA-Public Use
  Company Number: JP-GLAXOSMITHKLINE-JP2020254315

PATIENT
  Age: 76 Year
  Sex: Male
  Weight: 55 kg

DRUGS (3)
  1. PREDNISOLONE TABLETS [Concomitant]
     Active Substance: PREDNISOLONE
     Indication: INTERSTITIAL LUNG DISEASE
     Dosage: 30 MG
     Route: 048
     Dates: start: 20170512
  2. SAMTIREL [Suspect]
     Active Substance: ATOVAQUONE
     Indication: ANTIFUNGAL PROPHYLAXIS
     Dosage: 10 ML
     Route: 048
     Dates: start: 20170616, end: 20170624
  3. FLOMOX (CEFCAPENE PIVOXIL HYDROCHLORIDE) [Suspect]
     Active Substance: CEFCAPENE PIVOXIL HYDROCHLORIDE
     Indication: INFECTION PROPHYLAXIS
     Dosage: 300 MG
     Route: 048
     Dates: start: 20170621, end: 20170624

REACTIONS (6)
  - Septic shock [Recovering/Resolving]
  - Neutropenia [Recovered/Resolved]
  - Sepsis [Recovering/Resolving]
  - Balance disorder [Recovered/Resolved]
  - Pyrexia [Recovered/Resolved]
  - Tooth extraction [Recovering/Resolving]

NARRATIVE: CASE EVENT DATE: 20170623
